FAERS Safety Report 17051743 (Version 1)
Quarter: 2019Q4

REPORT INFORMATION
  Report Type: Spontaneous
  Country: PL (occurrence: PL)
  Receive Date: 20191120
  Receipt Date: 20191120
  Transmission Date: 20200122
  Serious: Yes (Hospitalization)
  Sender: FDA-Public Use
  Company Number: PL-ROCHE-2474351

PATIENT
  Age: 67 Year
  Sex: Female

DRUGS (1)
  1. TOCILIZUMAB. [Suspect]
     Active Substance: TOCILIZUMAB
     Indication: RHEUMATOID ARTHRITIS
     Route: 065
     Dates: start: 201809, end: 201901

REACTIONS (4)
  - Soft tissue infection [Unknown]
  - Actinomycosis [Unknown]
  - Erysipelas [Unknown]
  - Vasculitis [Unknown]

NARRATIVE: CASE EVENT DATE: 2019
